FAERS Safety Report 21592325 (Version 1)
Quarter: 2022Q4

REPORT INFORMATION
  Report Type: Spontaneous
  Country: PT (occurrence: PT)
  Receive Date: 20221114
  Receipt Date: 20221114
  Transmission Date: 20230112
  Serious: Yes (Other)
  Sender: FDA-Public Use
  Company Number: PT-009507513-2211PRT003582

PATIENT
  Sex: Female

DRUGS (2)
  1. PEMBROLIZUMAB [Suspect]
     Active Substance: PEMBROLIZUMAB
  2. AXITINIB [Suspect]
     Active Substance: AXITINIB

REACTIONS (2)
  - Hepatotoxicity [Unknown]
  - Skin toxicity [Unknown]
